FAERS Safety Report 11064699 (Version 1)
Quarter: 2015Q2

REPORT INFORMATION
  Report Type: Spontaneous
  Country: IT (occurrence: IT)
  Receive Date: 20150424
  Receipt Date: 20150424
  Transmission Date: 20150821
  Serious: Yes (Hospitalization)
  Sender: FDA-Public Use
  Company Number: IT-GILEAD-2013-0089799

PATIENT
  Age: 80 Year
  Sex: Male
  Weight: 68 kg

DRUGS (12)
  1. CLOPIDOGREL [Concomitant]
     Active Substance: CLOPIDOGREL BISULFATE
     Indication: PRODUCT USED FOR UNKNOWN INDICATION
     Dosage: 75 MG, UNK
  2. PANTOPRAZOLE SODIUM [Concomitant]
     Indication: PRODUCT USED FOR UNKNOWN INDICATION
     Dosage: 40 MG, UNK
  3. BISOPROLOL HEMIFUMARATE [Interacting]
     Active Substance: BISOPROLOL FUMARATE
     Dosage: 1.25 MG, UNK
     Route: 048
     Dates: start: 20131126
  4. IVABRADINE [Interacting]
     Active Substance: IVABRADINE
     Indication: MYOCARDIAL ISCHAEMIA
     Dosage: 10 MG, QD
     Route: 048
     Dates: start: 20130920, end: 20131125
  5. TAMSULOSIN [Concomitant]
     Active Substance: TAMSULOSIN
  6. RAMIPRIL. [Concomitant]
     Active Substance: RAMIPRIL
     Indication: PRODUCT USED FOR UNKNOWN INDICATION
     Dosage: 2.5 MG, UNK
  7. ATORVASTATIN CALCIUM TRIHYDRATE [Concomitant]
     Active Substance: ATORVASTATIN CALCIUM
     Indication: PRODUCT USED FOR UNKNOWN INDICATION
     Dosage: 40 MG, UNK
  8. NITROGLICERINA [Concomitant]
     Active Substance: NITROGLYCERIN
     Indication: PRODUCT USED FOR UNKNOWN INDICATION
     Dosage: 15 MG, UNK
  9. AZOPT [Concomitant]
     Active Substance: BRINZOLAMIDE
     Indication: PRODUCT USED FOR UNKNOWN INDICATION
  10. RANOLAZINE [Suspect]
     Active Substance: RANOLAZINE
     Indication: MYOCARDIAL ISCHAEMIA
     Dosage: 2 DF, QD
     Route: 048
     Dates: start: 20130920, end: 20131125
  11. BISOPROLOL HEMIFUMARATE [Interacting]
     Active Substance: BISOPROLOL FUMARATE
     Indication: MYOCARDIAL ISCHAEMIA
     Dosage: 2.5 MG, QD
     Route: 048
     Dates: start: 20130920
  12. CARDIOASPIRIN [Concomitant]
     Active Substance: ASPIRIN
     Indication: PRODUCT USED FOR UNKNOWN INDICATION

REACTIONS (3)
  - Sinus bradycardia [Recovered/Resolved]
  - Drug interaction [Recovered/Resolved]
  - Vertigo [Recovered/Resolved]

NARRATIVE: CASE EVENT DATE: 20131125
